FAERS Safety Report 15926588 (Version 1)
Quarter: 2019Q1

REPORT INFORMATION
  Report Type: Spontaneous
  Country: US (occurrence: US)
  Receive Date: 20190206
  Receipt Date: 20190206
  Transmission Date: 20190417
  Serious: No
  Sender: FDA-Public Use
  Company Number: US-SUNOVION-2019SUN000316

PATIENT
  Sex: Male
  Weight: 95.69 kg

DRUGS (7)
  1. LATUDA [Suspect]
     Active Substance: LURASIDONE HYDROCHLORIDE
     Dosage: 80 MG
     Route: 048
  2. LATUDA [Suspect]
     Active Substance: LURASIDONE HYDROCHLORIDE
     Dosage: 80 MG
     Route: 048
  3. CYMBALTA [Concomitant]
     Active Substance: DULOXETINE HYDROCHLORIDE
     Dosage: 50 MG
     Route: 048
  4. LATUDA [Suspect]
     Active Substance: LURASIDONE HYDROCHLORIDE
     Dosage: 60 MG (ABOUT THREE OR FOUR WEEKS PRIOR TO THE REPORT)
     Route: 048
  5. OMEPRAZOLE G GAM [Concomitant]
     Indication: VOMITING
     Dosage: 20 MG, QD SINCE 6 MONTHS
     Route: 048
  6. LATUDA [Suspect]
     Active Substance: LURASIDONE HYDROCHLORIDE
     Dosage: 100 MG (ABOUT EIGHT WEEKS PRIOR TO THE REPORT)
     Route: 048
  7. LATUDA [Suspect]
     Active Substance: LURASIDONE HYDROCHLORIDE
     Dosage: 80 MG
     Route: 048
     Dates: start: 2012

REACTIONS (7)
  - Anorectal discomfort [Not Recovered/Not Resolved]
  - Incontinence [Unknown]
  - Anal pruritus [Not Recovered/Not Resolved]
  - Vomiting [Unknown]
  - Excessive eye blinking [Recovering/Resolving]
  - Mania [Unknown]
  - Therapeutic response unexpected [Unknown]
